FAERS Safety Report 17886748 (Version 2)
Quarter: 2020Q4

REPORT INFORMATION
  Report Type: Spontaneous
  Country: US (occurrence: US)
  Receive Date: 20200611
  Receipt Date: 20201001
  Transmission Date: 20210113
  Serious: Yes (Hospitalization)
  Sender: FDA-Public Use
  Company Number: US-009507513-2006USA002269

PATIENT
  Sex: Female

DRUGS (1)
  1. PRINIVIL [Suspect]
     Active Substance: LISINOPRIL
     Indication: BLOOD PRESSURE ABNORMAL
     Dosage: 20 MG, TWICE A DAY
     Route: 048

REACTIONS (4)
  - Panic reaction [Unknown]
  - Product availability issue [Unknown]
  - Blood pressure abnormal [Unknown]
  - Adverse reaction [Unknown]
